FAERS Safety Report 5982927-2 (Version None)
Quarter: 2008Q4

REPORT INFORMATION
  Report Type: 
  Country: None (occurrence: None)
  Receive Date: 20081125
  Receipt Date: 20071108
  Transmission Date: 20090506
  Serious: Yes (Other)
  Sender: FDA-Public Use
  Company Number: 2007MP000624

PATIENT
  Age: 15 Year
  Sex: Female

DRUGS (1)
  1. GLIADEL [Suspect]
     Indication: GLIOBLASTOMA MULTIFORME
     Dosage: 1X;ICER
     Dates: start: 20021001

REACTIONS (1)
  - METASTASES TO SPINE [None]
